FAERS Safety Report 9079234 (Version 2)
Quarter: 2016Q4

REPORT INFORMATION
  Report Type: Report from Study
  Country: GB (occurrence: GB)
  Receive Date: 20130130
  Receipt Date: 20161223
  Transmission Date: 20170207
  Serious: Yes (Death, Other)
  Sender: FDA-Public Use
  Company Number: GB-ROCHE-1168112

PATIENT
  Age: 62 Year
  Sex: Male
  Weight: 86 kg

DRUGS (1)
  1. RITUXIMAB [Suspect]
     Active Substance: RITUXIMAB
     Indication: RHEUMATOID ARTHRITIS
     Route: 065
     Dates: start: 20090804

REACTIONS (3)
  - Laryngeal squamous cell carcinoma [Recovered/Resolved with Sequelae]
  - Death [Fatal]
  - Laryngeal neoplasm [Unknown]

NARRATIVE: CASE EVENT DATE: 20111015
